FAERS Safety Report 9342141 (Version 3)
Quarter: 2014Q1

REPORT INFORMATION
  Report Type: Spontaneous
  Country: JP (occurrence: JP)
  Receive Date: 20130611
  Receipt Date: 20140218
  Transmission Date: 20141002
  Serious: Yes (Other)
  Sender: FDA-Public Use
  Company Number: JP-NAPPMUNDI-GBR-2013-0014168

PATIENT
  Age: 67 Year
  Sex: Male

DRUGS (4)
  1. OXYCODONE HCL PR TABLET [Suspect]
     Indication: CANCER PAIN
     Dosage: 20 MG, BID
     Route: 048
     Dates: start: 20130511, end: 20130515
  2. OXYCODONE HCL PR TABLET [Suspect]
     Dosage: 15 MG, BID
     Route: 048
     Dates: start: 20130507, end: 20130510
  3. OXYCODONE HCL PR TABLET [Suspect]
     Dosage: 10 MG, BID
     Route: 048
     Dates: start: 20130425, end: 20130506
  4. OXYCODONE HCL PR TABLET [Suspect]
     Dosage: 5 MG, BID
     Route: 048
     Dates: start: 20130422, end: 20130424

REACTIONS (6)
  - Sphincter of Oddi dysfunction [Recovered/Resolved]
  - Biliary dilatation [Recovered/Resolved]
  - Alanine aminotransferase abnormal [Recovered/Resolved]
  - Aspartate aminotransferase abnormal [Recovered/Resolved]
  - Blood alkaline phosphatase abnormal [Recovered/Resolved]
  - Gamma-glutamyltransferase abnormal [Recovered/Resolved]
